FAERS Safety Report 9252767 (Version 1)
Quarter: 2013Q2

REPORT INFORMATION
  Report Type: Spontaneous
  Country: FR (occurrence: FR)
  Receive Date: 20130424
  Receipt Date: 20130424
  Transmission Date: 20140414
  Serious: Yes (Hospitalization)
  Sender: FDA-Public Use
  Company Number: FR-TEVA-399200ISR

PATIENT
  Age: 28 Year
  Sex: Female

DRUGS (10)
  1. CIPROFLOXACIN [Suspect]
     Indication: INFECTION
     Dosage: 1000 MILLIGRAM DAILY;
     Route: 048
  2. METHOTREXATE [Interacting]
     Indication: NON-HODGKIN^S LYMPHOMA
     Dosage: 3 G/M2
  3. SODIUM BICARBONATE [Interacting]
     Dosage: ALKALINE LOAD PRIOR TO METHOTREXATE INFUSION
  4. SODIUM BICARBONATE [Interacting]
     Dosage: ADDITIONAL 70MMOL OVER 15 MINS IF URINARY PH LOWER THAN 7.5
     Route: 050
  5. FOLINIC ACID [Concomitant]
     Route: 042
  6. IFOSFAMIDE [Concomitant]
     Indication: NON-HODGKIN^S LYMPHOMA
     Route: 065
  7. ETOPOSIDE [Concomitant]
     Indication: NON-HODGKIN^S LYMPHOMA
     Route: 065
  8. CYTARABINE [Concomitant]
     Indication: NON-HODGKIN^S LYMPHOMA
     Route: 065
  9. CEFOTAXIME [Concomitant]
     Indication: INFECTION
     Dosage: 3 GRAM DAILY;
     Route: 042
  10. VALACICLOVIR [Concomitant]
     Dosage: 1000 MILLIGRAM DAILY;
     Route: 065

REACTIONS (7)
  - Toxicity to various agents [Recovering/Resolving]
  - Drug interaction [Recovering/Resolving]
  - Pancytopenia [Recovering/Resolving]
  - Pyrexia [Recovering/Resolving]
  - Mucosal inflammation [Unknown]
  - Diarrhoea [Unknown]
  - Skin necrosis [Unknown]
